FAERS Safety Report 19870018 (Version 2)
Quarter: 2021Q4

REPORT INFORMATION
  Report Type: Report from Study
  Country: CH (occurrence: CH)
  Receive Date: 20210923
  Receipt Date: 20211012
  Transmission Date: 20220304
  Serious: Yes (Other)
  Sender: FDA-Public Use
  Company Number: CH-SUN PHARMACEUTICAL INDUSTRIES LTD-2021RR-312267

PATIENT
  Age: 24 Year
  Sex: Female

DRUGS (3)
  1. METOPROLOL [Suspect]
     Active Substance: METOPROLOL
     Indication: Tachycardia
     Dosage: UNK
     Route: 065
  2. FLUDROCORTISONE [Suspect]
     Active Substance: FLUDROCORTISONE
     Indication: Tachycardia
     Dosage: UNK
     Route: 065
  3. MIDODRINE [Suspect]
     Active Substance: MIDODRINE
     Indication: Tachycardia
     Dosage: UNK
     Route: 065

REACTIONS (2)
  - Drug ineffective [Unknown]
  - Impaired quality of life [Unknown]
